FAERS Safety Report 7323758-0 (Version None)
Quarter: 2011Q1

REPORT INFORMATION
  Report Type: 
  Country: None (occurrence: None)
  Receive Date: 20110301
  Receipt Date: 20110125
  Transmission Date: 20110831
  Serious: Yes (Death, Hospitalization, Other)
  Sender: FDA-Public Use
  Company Number: MY-ABBOTT-10R-101-0684427-00

PATIENT
  Sex: Female
  Weight: 1.65 kg

DRUGS (1)
  1. SURVANTA [Suspect]
     Indication: PRODUCT USED FOR UNKNOWN INDICATION
     Dosage: 1.7 ML IN EACH OF 4 QUADRANT
     Route: 050
     Dates: start: 20101023, end: 20101023

REACTIONS (5)
  - CARDIAC ARREST [None]
  - SEPSIS [None]
  - DISSEMINATED INTRAVASCULAR COAGULATION [None]
  - PULMONARY HAEMORRHAGE [None]
  - NEONATAL RESPIRATORY DISTRESS SYNDROME [None]
